FAERS Safety Report 11419185 (Version 1)
Quarter: 2015Q3

REPORT INFORMATION
  Report Type: Spontaneous
  Country: US (occurrence: None)
  Receive Date: 20150824
  Receipt Date: 20150824
  Transmission Date: 20151125
  Serious: No
  Sender: FDA-Public Use
  Company Number: None

PATIENT
  Age: 74 Year
  Sex: Male
  Weight: 102.06 kg

DRUGS (6)
  1. PRAVASTATIN [Concomitant]
     Active Substance: PRAVASTATIN\PRAVASTATIN SODIUM
  2. BETAMETHASONE DIPROPIONATE LOTIO 0.05% [Suspect]
     Active Substance: BETAMETHASONE DIPROPIONATE
     Indication: ONYCHOMYCOSIS
     Dosage: RUB ON 2X DAILY
     Route: 061
     Dates: start: 20150813, end: 20150821
  3. VALSARTAN. [Concomitant]
     Active Substance: VALSARTAN
  4. ONE-A-DAY NOS [Concomitant]
     Active Substance: MINERALS\VITAMINS
  5. METFORMIN [Concomitant]
     Active Substance: METFORMIN HYDROCHLORIDE
  6. AMLODIPINE [Concomitant]
     Active Substance: AMLODIPINE BESYLATE

REACTIONS (1)
  - Vomiting [None]

NARRATIVE: CASE EVENT DATE: 20150821
